FAERS Safety Report 9568829 (Version 3)
Quarter: 2016Q3

REPORT INFORMATION
  Report Type: Spontaneous
  Country: US (occurrence: US)
  Receive Date: 20130930
  Receipt Date: 20160803
  Transmission Date: 20161109
  Serious: Yes (Hospitalization, Other)
  Sender: FDA-Public Use
  Company Number: US-AMGEN-USASP2013047701

PATIENT
  Age: 68 Year
  Sex: Female
  Weight: 63.49 kg

DRUGS (7)
  1. VITAMIN B COMPLEX WITH C [Concomitant]
     Active Substance: ASCORBIC ACID\CALCIUM PANTOTHENATE\CYANOCOBALAMIN\NIACINAMIDE\PYRIDOXINE HYDROCHLORIDE\RIBOFLAVIN\THIAMINE MONONITRATE
     Dosage: UNK
  2. ENBREL [Suspect]
     Active Substance: ETANERCEPT
     Indication: RHEUMATOID ARTHRITIS
     Dosage: 50 MG EVERY OTHER WEEK
     Route: 058
     Dates: start: 2008, end: 201303
  3. ENBREL [Suspect]
     Active Substance: ETANERCEPT
     Indication: ARTHROPATHY
     Dosage: 50 MG, QWK
     Route: 058
     Dates: end: 2016
  4. TRAMADOL. [Concomitant]
     Active Substance: TRAMADOL
     Dosage: 50 MG, UNK
  5. FOLIC ACID. [Concomitant]
     Active Substance: FOLIC ACID
     Dosage: 1 MG, UNK
  6. METHOTREXATE. [Concomitant]
     Active Substance: METHOTREXATE
     Dosage: 2.5 MG, UNK
  7. RECLAST [Concomitant]
     Active Substance: ZOLEDRONIC ACID
     Dosage: 5/100 ML

REACTIONS (16)
  - Thermal burn [Recovered/Resolved]
  - Chills [Recovering/Resolving]
  - Injection site bruising [Unknown]
  - Insomnia [Recovering/Resolving]
  - Drug effect decreased [Unknown]
  - Injection site rash [Unknown]
  - Weight decreased [Recovering/Resolving]
  - Rheumatoid arthritis [Recovering/Resolving]
  - Pneumonia [Recovered/Resolved]
  - Decreased appetite [Recovering/Resolving]
  - Colonoscopy [Unknown]
  - Blister rupture [Unknown]
  - Bronchitis [Recovered/Resolved]
  - Injection site vesicles [Unknown]
  - Night sweats [Recovering/Resolving]
  - Endoscopy [Unknown]

NARRATIVE: CASE EVENT DATE: 201212
